FAERS Safety Report 24326370 (Version 2)
Quarter: 2025Q1

REPORT INFORMATION
  Report Type: Spontaneous
  Country: CO (occurrence: CO)
  Receive Date: 20240917
  Receipt Date: 20250123
  Transmission Date: 20250409
  Serious: Yes (Death, Other)
  Sender: REGENERON
  Company Number: CO-SA-2024SA263859

PATIENT
  Age: 83 Year
  Sex: Male

DRUGS (1)
  1. PRALUENT [Suspect]
     Active Substance: ALIROCUMAB
     Indication: Type IIa hyperlipidaemia
     Route: 058

REACTIONS (8)
  - Death [Fatal]
  - Pneumonia [Unknown]
  - Syncope [Unknown]
  - Vomiting [Unknown]
  - Hypotension [Unknown]
  - Arterial occlusive disease [Unknown]
  - Dyspnoea [Unknown]
  - Aphasia [Unknown]

NARRATIVE: CASE EVENT DATE: 20240829
